FAERS Safety Report 4386970-9 (Version None)
Quarter: 2004Q2

REPORT INFORMATION
  Report Type: 
  Country: None (occurrence: None)
  Receive Date: 20040630
  Receipt Date: 20040611
  Transmission Date: 20050107
  Serious: Yes (Life-Threatening, Hospitalization)
  Sender: FDA-Public Use
  Company Number: 200412018JP

PATIENT
  Age: 68 Year
  Sex: Male
  Weight: 71 kg

DRUGS (8)
  1. KETEK [Suspect]
     Indication: PNEUMONIA
     Route: 048
     Dates: start: 20040529, end: 20040603
  2. ROCEPHIN [Suspect]
     Indication: PNEUMONIA
     Route: 041
     Dates: start: 20040529, end: 20040601
  3. ERYTHROMYCIN [Concomitant]
     Indication: BRONCHITIS CHRONIC
     Dates: start: 20021030, end: 20040528
  4. CLEANAL [Concomitant]
     Indication: BRONCHITIS CHRONIC
     Route: 048
     Dates: start: 20021030
  5. ASTOMIN [Concomitant]
     Indication: BRONCHITIS CHRONIC
     Route: 048
     Dates: start: 20021030
  6. GRIMAC [Concomitant]
     Indication: GASTRITIS
     Route: 048
     Dates: start: 20021030
  7. THEOLONG [Concomitant]
     Indication: BRONCHITIS CHRONIC
     Dates: start: 20030425
  8. SOLU-MEDROL [Concomitant]
     Indication: ASTHMA
     Route: 041
     Dates: start: 20040529, end: 20040531

REACTIONS (5)
  - DYSPNOEA [None]
  - FACE OEDEMA [None]
  - OEDEMA PERIPHERAL [None]
  - PARAESTHESIA [None]
  - TOXIC EPIDERMAL NECROLYSIS [None]
